FAERS Safety Report 10519088 (Version 1)
Quarter: 2014Q4

REPORT INFORMATION
  Report Type: Spontaneous
  Country: FR (occurrence: FR)
  Receive Date: 20141015
  Receipt Date: 20141015
  Transmission Date: 20150528
  Serious: Yes (Congenital Anomaly)
  Sender: FDA-Public Use
  Company Number: FR-ASTRAZENECA-2014SE77030

PATIENT

DRUGS (2)
  1. COCAINE [Suspect]
     Active Substance: COCAINE
     Route: 064
  2. XEROQUEL [Suspect]
     Active Substance: QUETIAPINE FUMARATE
     Indication: BIPOLAR DISORDER
     Route: 064

REACTIONS (1)
  - Congenital anomaly [Not Recovered/Not Resolved]
